FAERS Safety Report 5504963-2 (Version None)
Quarter: 2007Q4

REPORT INFORMATION
  Report Type: 
  Country: None (occurrence: None)
  Receive Date: 20071102
  Receipt Date: 20071031
  Transmission Date: 20080405
  Serious: Yes (Death, Hospitalization)
  Sender: FDA-Public Use
  Company Number: FR-AVENTIS-200713455FR

PATIENT
  Age: 61 Year
  Sex: Female

DRUGS (4)
  1. TAXOTERE [Suspect]
     Dates: start: 20070920
  2. CARBOPLATIN [Suspect]
     Dates: start: 20070920
  3. FLUOROURACIL [Concomitant]
     Dates: start: 20070806, end: 20070812
  4. RADIOTHERAPY [Concomitant]

REACTIONS (2)
  - LEUKOPENIA [None]
  - THROMBOCYTOPENIA [None]
